FAERS Safety Report 11649327 (Version 1)
Quarter: 2015Q4

REPORT INFORMATION
  Report Type: Spontaneous
  Country: US (occurrence: US)
  Receive Date: 20151021
  Receipt Date: 20151021
  Transmission Date: 20160304
  Serious: Yes (Hospitalization, Other)
  Sender: FDA-Public Use
  Company Number: US-MALLINCKRODT-T201504774

PATIENT
  Age: 32 Year
  Sex: Male

DRUGS (1)
  1. HYDROCODONE/ACETAMINOPHEN [Suspect]
     Active Substance: ACETAMINOPHEN\HYDROCODONE
     Indication: PRODUCT USED FOR UNKNOWN INDICATION
     Dosage: 12 TABLETS
     Route: 048

REACTIONS (6)
  - Miosis [Recovering/Resolving]
  - Intentional self-injury [Recovered/Resolved]
  - Dyspnoea [Recovered/Resolved]
  - Intentional overdose [None]
  - Somnolence [Recovering/Resolving]
  - Oxygen saturation decreased [Recovered/Resolved]
